FAERS Safety Report 13135412 (Version 2)
Quarter: 2017Q1

REPORT INFORMATION
  Report Type: Spontaneous
  Country: DK (occurrence: DK)
  Receive Date: 20170120
  Receipt Date: 20170210
  Transmission Date: 20170428
  Serious: Yes (Hospitalization)
  Sender: FDA-Public Use
  Company Number: DK-SA-2017SA008460

PATIENT
  Age: 30 Year
  Sex: Female
  Weight: 65 kg

DRUGS (2)
  1. FEXOFENADINE [Suspect]
     Active Substance: FEXOFENADINE\FEXOFENADINE HYDROCHLORIDE
     Indication: COLD URTICARIA
     Dosage: DOSIS: 2, STYRKE: 180 MG
     Route: 065
     Dates: start: 2001
  2. SERTRALINE [Suspect]
     Active Substance: SERTRALINE HYDROCHLORIDE
     Indication: OBSESSIVE-COMPULSIVE DISORDER
     Dosage: STYRKE: 150 MG TOTAL
     Route: 048
     Dates: start: 2008

REACTIONS (3)
  - Placenta accreta [Recovered/Resolved]
  - Exposure during pregnancy [Unknown]
  - Surgery [Unknown]

NARRATIVE: CASE EVENT DATE: 20150606
